FAERS Safety Report 18283157 (Version 1)
Quarter: 2020Q3

REPORT INFORMATION
  Report Type: Spontaneous
  Country: BH (occurrence: BH)
  Receive Date: 20200918
  Receipt Date: 20200918
  Transmission Date: 20201103
  Serious: Yes (Hospitalization, Other)
  Sender: FDA-Public Use
  Company Number: BH-SCIEGEN-2020SCILIT00285

PATIENT
  Age: 57 Year
  Sex: Female

DRUGS (7)
  1. GLUCAGON. [Interacting]
     Active Substance: GLUCAGON
     Indication: HYPOGLYCAEMIA
     Route: 065
  2. GLUCAGON. [Interacting]
     Active Substance: GLUCAGON
     Indication: LACTIC ACIDOSIS
  3. DEXTROSE. [Interacting]
     Active Substance: DEXTROSE
     Indication: LACTIC ACIDOSIS
     Dosage: IV DEXTROSE FOR 24 HOURS
     Route: 042
  4. BICARBONATE [Interacting]
     Active Substance: SODIUM BICARBONATE
     Indication: HYPOGLYCAEMIA
     Dosage: 200 ML
     Route: 065
  5. BICARBONATE [Interacting]
     Active Substance: SODIUM BICARBONATE
     Indication: LACTIC ACIDOSIS
  6. DEXTROSE. [Interacting]
     Active Substance: DEXTROSE
     Indication: HYPOGLYCAEMIA
     Route: 065
  7. METFORMIN HYDROCHLORIDETABLETS [Suspect]
     Active Substance: METFORMIN HYDROCHLORIDE
     Indication: PRODUCT USED FOR UNKNOWN INDICATION
     Route: 048

REACTIONS (4)
  - Hypoglycaemia [Recovered/Resolved]
  - Lactic acidosis [Recovering/Resolving]
  - Accidental exposure to product [Unknown]
  - Product appearance confusion [Unknown]
